FAERS Safety Report 6271870-X (Version None)
Quarter: 2009Q3

REPORT INFORMATION
  Report Type: 
  Country: None (occurrence: None)
  Receive Date: 20090717
  Receipt Date: 20090709
  Transmission Date: 20100115
  Serious: No
  Sender: FDA-Public Use
  Company Number: PHEH2009US07144

PATIENT
  Sex: Female
  Weight: 63.492 kg

DRUGS (9)
  1. SANDOSTATIN LAR [Suspect]
     Indication: CARCINOID SYNDROME
     Dosage: 20 MG
     Route: 030
     Dates: start: 20090402, end: 20090402
  2. SANDOSTATIN LAR [Suspect]
     Dosage: 20 MG, UNK
     Route: 030
     Dates: start: 20090507, end: 20090507
  3. SANDOSTATIN LAR [Suspect]
     Dosage: 20 MG, QMO
     Dates: start: 20030101
  4. CENTRUM SILVER [Concomitant]
     Dosage: 1 TABLET, DAILY
     Route: 048
  5. VITAMIN D [Concomitant]
     Dosage: 1000 I.U., QD
     Route: 048
  6. ESTRADIOL [Concomitant]
     Dosage: 0.1 MG, WEEKLY
     Route: 061
  7. GLUCOSAMINE [Concomitant]
     Dosage: 1000 MG, TID
     Route: 048
  8. SLOW-FE [Concomitant]
     Dosage: 50 MG, QD
     Route: 048
  9. TYLENOL (CAPLET) [Concomitant]
     Dosage: UNK, BID

REACTIONS (5)
  - BLOOD GLUCOSE DECREASED [None]
  - BLOOD GLUCOSE INCREASED [None]
  - DYSGEUSIA [None]
  - FEELING ABNORMAL [None]
  - PAROSMIA [None]
